FAERS Safety Report 20670474 (Version 1)
Quarter: 2022Q2

REPORT INFORMATION
  Report Type: Spontaneous
  Country: TW (occurrence: TW)
  Receive Date: 20220404
  Receipt Date: 20220404
  Transmission Date: 20220720
  Serious: Yes (Death, Other)
  Sender: FDA-Public Use
  Company Number: TW-AMGEN-TWNSP2022053714

PATIENT
  Age: 78 Year
  Sex: Female

DRUGS (3)
  1. TRASTUZUMAB [Suspect]
     Active Substance: TRASTUZUMAB
     Indication: Adenocarcinoma gastric
     Dosage: UNK
     Route: 065
  2. PACLITAXEL [Suspect]
     Active Substance: PACLITAXEL
     Indication: Product used for unknown indication
     Route: 065
  3. NIVOLUMAB [Suspect]
     Active Substance: NIVOLUMAB
     Indication: Product used for unknown indication
     Route: 065

REACTIONS (19)
  - Neurotoxicity [Unknown]
  - Autoimmune hepatitis [Unknown]
  - Choking [Unknown]
  - Gaze palsy [Unknown]
  - Diplegia [Unknown]
  - Neuromyopathy [Unknown]
  - Myocardial infarction [Unknown]
  - Respiratory failure [Fatal]
  - Muscular weakness [Unknown]
  - Vision blurred [Unknown]
  - Dysphonia [Unknown]
  - Eyelid ptosis [Unknown]
  - Dysarthria [Unknown]
  - Vital capacity decreased [Unknown]
  - Blood creatine phosphokinase increased [Unknown]
  - Blood creatine phosphokinase MB increased [Unknown]
  - Troponin T increased [Unknown]
  - Peripheral sensory neuropathy [Unknown]
  - Cardiomegaly [Unknown]
